FAERS Safety Report 15359600 (Version 1)
Quarter: 2018Q3

REPORT INFORMATION
  Report Type: Report from Study
  Country: US (occurrence: US)
  Receive Date: 20180907
  Receipt Date: 20180907
  Transmission Date: 20181010
  Serious: No
  Sender: FDA-Public Use
  Company Number: PHHY2018US092260

PATIENT
  Age: 53 Year
  Sex: Female
  Weight: 93.44 kg

DRUGS (3)
  1. COSENTYX [Suspect]
     Active Substance: SECUKINUMAB
     Indication: SPINAL OSTEOARTHRITIS
     Dosage: UNK
     Route: 065
  2. COSENTYX [Suspect]
     Active Substance: SECUKINUMAB
     Indication: ANKYLOSING SPONDYLITIS
     Dosage: 150 MG, QMO
     Route: 058
     Dates: start: 201804
  3. HALDOL [Concomitant]
     Active Substance: HALOPERIDOL
     Indication: HYPERSENSITIVITY
     Route: 065

REACTIONS (6)
  - Eating disorder [Unknown]
  - Mouth swelling [Unknown]
  - Product use in unapproved indication [Unknown]
  - Stomatitis [Unknown]
  - Injection site pain [Unknown]
  - Lip swelling [Unknown]

NARRATIVE: CASE EVENT DATE: 201804
